FAERS Safety Report 10077452 (Version 2)
Quarter: 2014Q2

REPORT INFORMATION
  Report Type: Spontaneous
  Country: US (occurrence: US)
  Receive Date: 20140414
  Receipt Date: 20140414
  Transmission Date: 20141212
  Serious: No
  Sender: FDA-Public Use
  Company Number: US-BANPHARM-20131538

PATIENT
  Age: 64 Year
  Sex: Female

DRUGS (7)
  1. ALEVE LIQUID GELS 220 MG [Suspect]
     Indication: ARTHRITIS
     Route: 048
  2. ALEVE GEL CAPS [Suspect]
     Indication: ARTHRITIS
     Dosage: 3 DF, ONCE DAILY,
     Route: 048
     Dates: start: 2004
  3. ALEVE CAPLETS [Suspect]
     Indication: ARTHRITIS
     Route: 048
  4. FISH OIL [Concomitant]
  5. SYNTHROID [Concomitant]
  6. MAXIDE [Concomitant]
  7. NOVACET [Concomitant]

REACTIONS (2)
  - Drug ineffective [Unknown]
  - Therapeutic response changed [Unknown]
